FAERS Safety Report 8495114-3 (Version None)
Quarter: 2012Q3

REPORT INFORMATION
  Report Type: 
  Country: None (occurrence: None)
  Receive Date: 20120709
  Receipt Date: 20120627
  Transmission Date: 20120928
  Serious: No
  Sender: FDA-Public Use
  Company Number: US-JNJFOC-20120700108

PATIENT
  Sex: Male
  Weight: 77.11 kg

DRUGS (6)
  1. FENTANYL-100 [Suspect]
     Indication: SPINAL COLUMN STENOSIS
     Route: 062
  2. FENTANYL-100 [Suspect]
     Indication: FRACTURE
     Route: 062
  3. DURAGESIC-100 [Suspect]
     Indication: SPINAL DISORDER
     Route: 062
  4. FENTANYL-100 [Suspect]
     Indication: SPINAL DISORDER
     Route: 062
  5. DURAGESIC-100 [Suspect]
     Indication: SPINAL COLUMN STENOSIS
     Route: 062
  6. DURAGESIC-100 [Suspect]
     Indication: FRACTURE
     Route: 062

REACTIONS (2)
  - DRUG ADMINISTERED AT INAPPROPRIATE SITE [None]
  - APPLICATION SITE RASH [None]
